FAERS Safety Report 9505715 (Version 1)
Quarter: 2013Q1

REPORT INFORMATION
  Report Type: Spontaneous
  Country: US (occurrence: None)
  Receive Date: 20130220
  Receipt Date: 20130220
  Transmission Date: 20140127
  Serious: No
  Sender: FDA-Public Use
  Company Number: 1000041044

PATIENT
  Age: 34 Year
  Sex: Female

DRUGS (5)
  1. VIIBRYD [Suspect]
     Indication: SEASONAL AFFECTIVE DISORDER
     Route: 048
     Dates: start: 20121204
  2. ONFI (CLOBAZAM) [Concomitant]
  3. ONFI (CLOBAZAM) [Concomitant]
  4. IBUPROFEN (IBUPROFEN) (IBUPROFEN) [Concomitant]
  5. BIRTH CONTROL PILL (BIRTH CONTROL PILL) (BIRTH CONTROL PILL) [Concomitant]

REACTIONS (9)
  - Asthenia [None]
  - Dizziness [None]
  - Nausea [None]
  - Feeling hot [None]
  - Somnolence [None]
  - Headache [None]
  - Diarrhoea [None]
  - Fatigue [None]
  - Off label use [None]
